FAERS Safety Report 7694451-X (Version None)
Quarter: 2011Q3

REPORT INFORMATION
  Report Type: 
  Country: None (occurrence: None)
  Receive Date: 20110819
  Receipt Date: 20110805
  Transmission Date: 20111222
  Serious: Yes (Hospitalization, Other)
  Sender: FDA-Public Use
  Company Number: PHHY2011JP71271

PATIENT

DRUGS (3)
  1. RASILEZ [Suspect]
     Dosage: UNK UKN, UNK
     Route: 048
  2. ANGIOTENSIN II ANTAGONISTS [Suspect]
     Dosage: UNK UKN, UNK
  3. ALDACTONE [Suspect]

REACTIONS (1)
  - RENAL FAILURE ACUTE [None]
